FAERS Safety Report 7522386-1 (Version None)
Quarter: 2011Q2

REPORT INFORMATION
  Report Type: 
  Country: None (occurrence: None)
  Receive Date: 20110603
  Receipt Date: 20110520
  Transmission Date: 20111010
  Serious: Yes (Hospitalization, Other)
  Sender: FDA-Public Use
  Company Number: CA-ELI_LILLY_AND_COMPANY-CA_050207706

PATIENT
  Sex: Female

DRUGS (24)
  1. FLUOXETINE HCL [Concomitant]
     Dosage: 10 MG, EACH MORNING
  2. ATIVAN [Concomitant]
  3. OLANZAPINE [Suspect]
     Dosage: 5 MG, EACH EVENING
  4. ZYPREXA ZYDIS [Suspect]
     Dosage: 7.5 MG, QD
  5. NORTRIPTYLINE HCL [Concomitant]
     Dosage: 25 MG, 2/D
  6. PRILOSEC [Concomitant]
     Dosage: 20 MG, 2/D
  7. CLONAZEPAM [Concomitant]
     Dosage: 0.5 MG, 4/D
  8. JECTOFER [Concomitant]
     Dosage: 50 MG, UNK
  9. NOVOGESIC                          /00020001/ [Concomitant]
     Dosage: 1000 MG, 4/D
  10. OLANZAPINE [Suspect]
     Dosage: 2.5 MG, EACH EVENING
     Dates: start: 19991001
  11. OLANZAPINE [Suspect]
     Dosage: 7.5 MG, EACH EVENING
  12. OLANZAPINE [Suspect]
     Dosage: 10 MG, QD
  13. LEUKERAN [Concomitant]
     Dosage: 2 MG, DAILY (1/D)
  14. ZYPREXA ZYDIS [Suspect]
     Dosage: 5 MG, QD
  15. FLOVENT [Concomitant]
     Dosage: 2 D/F, 2/D
  16. PROMETRIUM [Concomitant]
     Dosage: 200 MG, EACH EVENING
  17. PANTOLOC                           /01263201/ [Concomitant]
     Dosage: 40 MG, 2/D
  18. OLANZAPINE [Suspect]
     Dosage: 2.5 MG, UNKNOWN
  19. BENTYL [Concomitant]
  20. FLUOXETINE HCL [Concomitant]
     Dosage: 40 MG, EACH MORNING
  21. TOFRANIL [Concomitant]
  22. AXID [Concomitant]
     Dosage: 600 MG, 2/D
  23. ZYPREXA ZYDIS [Suspect]
     Dosage: 10 MG, QD
  24. PROPULSID [Concomitant]

REACTIONS (6)
  - WEIGHT INCREASED [None]
  - ARRHYTHMIA [None]
  - HYPERGLYCAEMIA [None]
  - HYPERPROLACTINAEMIA [None]
  - PANCREATITIS [None]
  - DYSLIPIDAEMIA [None]
